FAERS Safety Report 5340658-6 (Version None)
Quarter: 2007Q2

REPORT INFORMATION
  Report Type: 
  Country: None (occurrence: None)
  Receive Date: 20070405
  Receipt Date: 20061205
  Transmission Date: 20071010
  Serious: No
  Sender: FDA-Public Use
  Company Number: US200612000234

PATIENT
  Age: 63 Year
  Sex: Female

DRUGS (5)
  1. FORTEO [Suspect]
     Indication: OSTEOPOROSIS
     Dosage: D/F
     Dates: start: 20061127
  2. CYMBALTA [Suspect]
     Dosage: 60 MG, DAILY (1/D)
     Dates: start: 20060601
  3. COZAAR [Concomitant]
  4. CRESTOR [Concomitant]
  5. NEXIUM [Concomitant]

REACTIONS (9)
  - BACTERIAL INFECTION [None]
  - FALL [None]
  - HOT FLUSH [None]
  - HYPERSENSITIVITY [None]
  - INJECTION SITE ERYTHEMA [None]
  - INJECTION SITE HAEMORRHAGE [None]
  - INJECTION SITE INJURY [None]
  - NERVOUSNESS [None]
  - SPINAL FRACTURE [None]
